FAERS Safety Report 9136947 (Version 1)
Quarter: 2013Q1

REPORT INFORMATION
  Report Type: Spontaneous
  Country: AR (occurrence: AR)
  Receive Date: 20130304
  Receipt Date: 20130304
  Transmission Date: 20140127
  Serious: Yes (Other)
  Sender: FDA-Public Use
  Company Number: AR-PFIZER INC-2013070776

PATIENT
  Age: 10 Year
  Sex: Male

DRUGS (2)
  1. GENOTROPIN [Suspect]
     Indication: GROWTH HORMONE DEFICIENCY
     Dosage: 0.6 MG TO 1 MG, 6X/WEEK
     Route: 058
     Dates: start: 20110202, end: 201205
  2. GENOTROPIN [Suspect]
     Dosage: UNK
     Route: 058
     Dates: start: 201207

REACTIONS (2)
  - Blindness [Recovered/Resolved]
  - Optic neuritis [Recovered/Resolved]
